FAERS Safety Report 9779004 (Version 3)
Quarter: 2014Q1

REPORT INFORMATION
  Report Type: Report from Study
  Country: JP (occurrence: JP)
  Receive Date: 20131223
  Receipt Date: 20140103
  Transmission Date: 20141002
  Serious: Yes (Hospitalization)
  Sender: FDA-Public Use
  Company Number: JP-BRISTOL-MYERS SQUIBB COMPANY-19897677

PATIENT
  Age: 46 Year
  Sex: Female

DRUGS (25)
  1. PACLITAXEL [Suspect]
     Indication: BREAST CANCER METASTATIC
     Dosage: DATE OF MOST RECENT DOSE OF PACLITAXEL PRIOR TO AE ONSET: 12/NOV/2013 (112 MG 1/1WK
     Route: 042
     Dates: start: 20130409
  2. BLINDED: BEVACIZUMAB [Suspect]
     Indication: BREAST CANCER METASTATIC
     Dosage: DATE OF MOST RECENT DOSE OF BEVACIZUMAB 12NOV13
     Route: 042
     Dates: start: 20130409
  3. BLINDED: PLACEBO [Suspect]
     Indication: BREAST CANCER METASTATIC
     Route: 042
     Dates: start: 20130409
  4. DEXAMETHASONE [Concomitant]
     Indication: HYPERSENSITIVITY
     Dosage: DEXART INJ (09-APR-2013)
     Dates: start: 20130416
  5. GASMOTIN [Concomitant]
     Indication: GASTROOESOPHAGEAL REFLUX DISEASE
     Dates: start: 20131030
  6. METHYLCOBALAMIN [Concomitant]
     Indication: PERIPHERAL SENSORY NEUROPATHY
     Dates: start: 20130423
  7. RESTAMIN [Concomitant]
     Indication: PREMEDICATION
     Dosage: TABS
     Dates: start: 20130409
  8. EXFORGE [Concomitant]
     Indication: HYPERTENSION
  9. ATENOLOL [Concomitant]
     Indication: HYPERTENSION
     Dosage: TABS 25
  10. DEXART [Concomitant]
     Indication: PREMEDICATION
     Dates: start: 20130409
  11. ZANTAC [Concomitant]
     Dosage: INJ
     Dates: start: 20130409
  12. LYRICA [Concomitant]
     Indication: PERIPHERAL SENSORY NEUROPATHY
     Dosage: CAPS
     Dates: start: 20130423
  13. MAGMITT [Concomitant]
     Indication: CONSTIPATION
     Dosage: TABS
     Dates: start: 20130430
  14. NEXIUM [Concomitant]
     Indication: GASTROOESOPHAGEAL REFLUX DISEASE
     Dosage: CAPS
     Dates: start: 20130522
  15. CELECOXIB [Concomitant]
     Indication: ARTHRALGIA
     Dosage: TABS
     Dates: start: 20130723
  16. CELECOXIB [Concomitant]
     Indication: MYALGIA
     Dosage: TABS
     Dates: start: 20130723
  17. LASIX [Concomitant]
     Indication: FACE OEDEMA
     Dosage: TABS
     Dates: start: 20130806
  18. LASIX [Concomitant]
     Indication: OEDEMA PERIPHERAL
     Dosage: TABS
     Dates: start: 20130806
  19. GASTROM [Concomitant]
     Indication: GASTROOESOPHAGEAL REFLUX DISEASE
     Dosage: GRANULES
     Dates: start: 20130806, end: 20131029
  20. CALONAL [Concomitant]
     Indication: MYALGIA
     Dosage: TABS 200
     Dates: start: 20130910
  21. CALONAL [Concomitant]
     Indication: ARTHRALGIA
     Dosage: TABS 200
     Dates: start: 20130910
  22. EVAMYL [Concomitant]
     Indication: INSOMNIA
     Dates: start: 20130917
  23. MYSLEE [Concomitant]
     Indication: INSOMNIA
     Dosage: TABS
     Dates: start: 20131008
  24. MEDICON [Concomitant]
     Indication: NASOPHARYNGITIS
     Dates: start: 20131112, end: 20131121
  25. MUCODYNE [Concomitant]
     Indication: NASOPHARYNGITIS
     Dates: start: 20131112, end: 20131121

REACTIONS (1)
  - Upper respiratory tract infection [Recovered/Resolved]
